FAERS Safety Report 16800758 (Version 1)
Quarter: 2019Q3

REPORT INFORMATION
  Report Type: Other
  Country: PL (occurrence: PL)
  Receive Date: 20190912
  Receipt Date: 20190912
  Transmission Date: 20191005
  Serious: Yes (Life-Threatening, Hospitalization)
  Sender: FDA-Public Use
  Company Number: PL-NOSTRUM LABORATORIES, INC.-2074387

PATIENT
  Age: 77 Year
  Sex: Male

DRUGS (1)
  1. MORPHINE SULFATE. [Suspect]
     Active Substance: MORPHINE SULFATE
     Indication: PAIN PROPHYLAXIS
     Route: 048

REACTIONS (6)
  - Accidental overdose [Recovered/Resolved]
  - Psychomotor hyperactivity [Recovered/Resolved]
  - Acute kidney injury [Recovered/Resolved]
  - Altered state of consciousness [Recovered/Resolved]
  - Multiple organ dysfunction syndrome [Unknown]
  - Acute respiratory distress syndrome [Recovered/Resolved]
